FAERS Safety Report 10516270 (Version 1)
Quarter: 2014Q4

REPORT INFORMATION
  Report Type: Spontaneous
  Country: US (occurrence: US)
  Receive Date: 20141014
  Receipt Date: 20141014
  Transmission Date: 20150528
  Serious: No
  Sender: FDA-Public Use
  Company Number: US-PFIZER INC-2014274767

PATIENT
  Age: 66 Year
  Sex: Female
  Weight: 112 kg

DRUGS (7)
  1. FISH OIL [Concomitant]
     Active Substance: FISH OIL
     Indication: ARTHRITIS
     Dosage: 1 DF, DAILY (AT NIGHT)
     Route: 048
  2. ROBITUSSIN MAXIMUM STRENGTH COUGH PLUS CHEST CONGESTION DM [Suspect]
     Active Substance: DEXTROMETHORPHAN HYDROBROMIDE\GUAIFENESIN
     Indication: BRONCHITIS BACTERIAL
     Dosage: 1 DF, EVERY 4 HRS
     Route: 048
     Dates: start: 20141002
  3. CORTISONE [Concomitant]
     Active Substance: CORTISONE\HYDROCORTISONE
     Indication: ARTHRITIS
     Dosage: 1 DF, EVERY 3 MONTHS
     Route: 030
  4. IBUPROFEN. [Concomitant]
     Active Substance: IBUPROFEN
     Indication: HEADACHE
     Dosage: 1 DF, (100 MG OR 250 MG TABLET )
     Route: 048
  5. AZITHROMYCIN [Suspect]
     Active Substance: AZITHROMYCIN ANHYDROUS
     Indication: BRONCHITIS BACTERIAL
     Dosage: 500 MG, SINGLE
     Dates: start: 20140928, end: 20140928
  6. AZITHROMYCIN [Suspect]
     Active Substance: AZITHROMYCIN ANHYDROUS
     Dosage: 250 MG, DAILY
     Dates: start: 20140929, end: 20141002
  7. FISH OIL [Concomitant]
     Active Substance: FISH OIL
     Indication: PROPHYLAXIS

REACTIONS (2)
  - Intentional product misuse [Unknown]
  - Drug ineffective for unapproved indication [Not Recovered/Not Resolved]

NARRATIVE: CASE EVENT DATE: 201410
